FAERS Safety Report 23658144 (Version 1)
Quarter: 2024Q1

REPORT INFORMATION
  Report Type: Spontaneous
  Country: US (occurrence: None)
  Receive Date: 20240320
  Receipt Date: 20240320
  Transmission Date: 20240410
  Serious: Yes (Hospitalization)
  Sender: FDA-Public Use
  Company Number: None

PATIENT
  Age: 64 Year
  Sex: Female
  Weight: 60 kg

DRUGS (13)
  1. NITROFURANTOIN [Suspect]
     Active Substance: NITROFURANTOIN
     Indication: Urinary tract disorder prophylaxis
     Dosage: 1 CAPSULE DAILY ORAL
     Route: 048
  2. NITROFURANTOIN [Suspect]
     Active Substance: NITROFURANTOIN
  3. SIMVASTATIN [Concomitant]
     Active Substance: SIMVASTATIN
  4. VALSARTAN [Concomitant]
     Active Substance: VALSARTAN
  5. AMLODIPINE [Concomitant]
     Active Substance: AMLODIPINE BESYLATE
  6. ZYPREXA [Concomitant]
     Active Substance: OLANZAPINE
  7. FLUOXETINE [Concomitant]
     Active Substance: FLUOXETINE HYDROCHLORIDE
  8. TRAZODONE [Concomitant]
     Active Substance: TRAZODONE HYDROCHLORIDE
  9. OMEPRAZOLE [Concomitant]
     Active Substance: OMEPRAZOLE
  10. ASPIRIN [Concomitant]
     Active Substance: ASPIRIN
  11. VITAM D AND CALCIUM [Concomitant]
  12. CHOLECALCIFEROL [Concomitant]
  13. MAGNESIUM OXIDE [Concomitant]
     Active Substance: MAGNESIUM OXIDE

REACTIONS (10)
  - Oxygen saturation decreased [None]
  - Interstitial lung disease [None]
  - C-reactive protein increased [None]
  - Red blood cell sedimentation rate increased [None]
  - Diarrhoea [None]
  - Therapy cessation [None]
  - Antineutrophil cytoplasmic antibody increased [None]
  - Tachypnoea [None]
  - Influenza [None]
  - Aspiration [None]

NARRATIVE: CASE EVENT DATE: 20240116
